FAERS Safety Report 7734624-0 (Version None)
Quarter: 2011Q3

REPORT INFORMATION
  Report Type: 
  Country: None (occurrence: None)
  Receive Date: 20110907
  Receipt Date: 20110830
  Transmission Date: 20111222
  Serious: Yes (Disabling, Other)
  Sender: FDA-Public Use
  Company Number: US-BAYER-2011-081009

PATIENT
  Sex: Male

DRUGS (2)
  1. MAGNEVIST [Suspect]
     Indication: ANGIOGRAM
  2. MAGNEVIST [Suspect]
     Indication: NUCLEAR MAGNETIC RESONANCE IMAGING
     Dosage: UNK, ONCE
     Dates: start: 20060717, end: 20060717

REACTIONS (4)
  - ANXIETY [None]
  - NEPHROGENIC SYSTEMIC FIBROSIS [None]
  - PAIN [None]
  - EMOTIONAL DISTRESS [None]
